FAERS Safety Report 18805909 (Version 1)
Quarter: 2021Q1

REPORT INFORMATION
  Report Type: Spontaneous
  Country: IT (occurrence: IT)
  Receive Date: 20210129
  Receipt Date: 20210129
  Transmission Date: 20210419
  Serious: Yes (Other)
  Sender: FDA-Public Use
  Company Number: IT-LUPIN PHARMACEUTICALS INC.-2021-00761

PATIENT
  Age: 3 Year
  Sex: Female
  Weight: 15 kg

DRUGS (7)
  1. VORICONAZOLE. [Suspect]
     Active Substance: VORICONAZOLE
     Dosage: 19 MILLIGRAM/KILOGRAM, BID
     Route: 042
  2. AMPHOTERICIN B. [Concomitant]
     Active Substance: AMPHOTERICIN B
     Indication: CEREBRAL ASPERGILLOSIS
  3. VORICONAZOLE. [Suspect]
     Active Substance: VORICONAZOLE
     Indication: CEREBRAL ASPERGILLOSIS
     Dosage: 8 MILLIGRAM/KILOGRAM, BID?MAINTENANCE
     Route: 042
  4. ISAVUCONAZOLE [Concomitant]
     Active Substance: ISAVUCONAZOLE
     Indication: BRONCHOPULMONARY ASPERGILLOSIS
     Dosage: 100 MILLIGRAM, TID?LOADING DOSE
     Route: 042
  5. ISAVUCONAZOLE [Concomitant]
     Active Substance: ISAVUCONAZOLE
     Indication: CEREBRAL ASPERGILLOSIS
     Dosage: 100 MILLIGRAM, QD?MAINTENANCE DOSE
     Route: 042
  6. AMPHOTERICIN B. [Concomitant]
     Active Substance: AMPHOTERICIN B
     Indication: BRONCHOPULMONARY ASPERGILLOSIS
     Dosage: 3 MILLIGRAM/KILOGRAM, QD
     Route: 065
  7. VORICONAZOLE. [Suspect]
     Active Substance: VORICONAZOLE
     Indication: BRONCHOPULMONARY ASPERGILLOSIS
     Dosage: 9 MILLIGRAM/KILOGRAM, QD?LOADING DOSE
     Route: 042

REACTIONS (1)
  - Drug ineffective [Unknown]
